FAERS Safety Report 8350141-1 (Version None)
Quarter: 2012Q2

REPORT INFORMATION
  Report Type: 
  Country: None (occurrence: None)
  Receive Date: 20120510
  Receipt Date: 20120503
  Transmission Date: 20120825
  Serious: Yes (Hospitalization, Other)
  Sender: FDA-Public Use
  Company Number: US-BAYER-2012-007436

PATIENT
  Age: 31 Year
  Sex: Female
  Weight: 136.5 kg

DRUGS (1)
  1. YASMIN [Suspect]
     Indication: CONTRACEPTION
     Dosage: UNK
     Dates: start: 20020101, end: 20060101

REACTIONS (5)
  - JUGULAR VEIN THROMBOSIS [None]
  - PAIN [None]
  - THROMBOSIS [None]
  - FEAR [None]
  - DEEP VEIN THROMBOSIS [None]
